FAERS Safety Report 4927760-5 (Version None)
Quarter: 2006Q1

REPORT INFORMATION
  Report Type: 
  Country: None (occurrence: None)
  Receive Date: 20060228
  Receipt Date: 20050415
  Transmission Date: 20060701
  Serious: No
  Sender: FDA-Public Use
  Company Number: US-GLAXOSMITHKLINE-A0554410A

PATIENT
  Age: 42 Year
  Sex: Male

DRUGS (7)
  1. ZIAGEN [Suspect]
     Indication: HIV INFECTION
     Dosage: 600MG PER DAY
     Route: 048
     Dates: start: 20050315
  2. ATAZANAVIR [Concomitant]
  3. RITONAVIR [Concomitant]
  4. TENOFOVIR [Concomitant]
  5. ATOVAQUONE [Concomitant]
  6. AZITHROMYCIN [Concomitant]
  7. LEXAPRO [Concomitant]

REACTIONS (3)
  - ABDOMINAL PAIN [None]
  - MYALGIA [None]
  - NAUSEA [None]
